FAERS Safety Report 7401981-4 (Version None)
Quarter: 2011Q2

REPORT INFORMATION
  Report Type: 
  Country: None (occurrence: None)
  Receive Date: 20110408
  Receipt Date: 20110328
  Transmission Date: 20111010
  Serious: Yes (Other)
  Sender: FDA-Public Use
  Company Number: JP-PFIZER INC-2011014645

PATIENT
  Age: 78 Year
  Sex: Female
  Weight: 60 kg

DRUGS (10)
  1. FLUOROURACIL [Concomitant]
     Dosage: 1500 MG/BODY/D1-2 (967.7 MG/M2/D1-2)
     Route: 041
     Dates: start: 20100726, end: 20100726
  2. CAMPTOSAR [Suspect]
     Dosage: 90 MG/BODY (58.1 MG/M2)
     Route: 041
     Dates: start: 20100705, end: 20100726
  3. FLUOROURACIL [Concomitant]
     Indication: COLORECTAL CANCER
     Dosage: 3000 MG/BODY/D1-2 (1935.5 MG/M2/D1-2)
     Route: 041
     Dates: start: 20100510, end: 20100607
  4. FLUOROURACIL [Concomitant]
     Dosage: 2000 MG/BODY/D1-2 (1290.3 MG/M2/D1-2)
     Route: 041
     Dates: start: 20100705, end: 20100705
  5. CAMPTOSAR [Suspect]
     Dosage: 140 MG/BODY (90.3 MG/M2)
     Route: 041
     Dates: start: 20100524, end: 20100607
  6. CAMPTOSAR [Suspect]
     Indication: COLORECTAL CANCER
     Dosage: 180 MG/BODY (116.1 MG/M2)
     Route: 041
     Dates: start: 20100510, end: 20100510
  7. CAMPTOSAR [Suspect]
     Dosage: 110 MG/BODY (71 MG/M2)
     Route: 041
     Dates: start: 20100621, end: 20100621
  8. CALCIUM LEVOFOLINATE [Concomitant]
     Dosage: 200 MG/BODY (129 MG/M2)
     Route: 041
     Dates: start: 20100621, end: 20100726
  9. CALCIUM LEVOFOLINATE [Concomitant]
     Indication: COLORECTAL CANCER
     Dosage: 250 MG/BODY (161.3 MG/M2)
     Route: 041
     Dates: start: 20100510, end: 20100607
  10. FLUOROURACIL [Concomitant]
     Dosage: 2500 MG/BODY/D1-2 (1612.9 MG/M2/D1-2)
     Route: 041
     Dates: start: 20100621, end: 20100621

REACTIONS (1)
  - NEUROPATHY PERIPHERAL [None]
